FAERS Safety Report 15024888 (Version 1)
Quarter: 2018Q2

REPORT INFORMATION
  Report Type: Spontaneous
  Country: US (occurrence: US)
  Receive Date: 20180618
  Receipt Date: 20180618
  Transmission Date: 20180711
  Serious: Yes (Other)
  Sender: FDA-Public Use
  Company Number: US-REGENERON PHARMACEUTICALS, INC.-2018-25498

PATIENT

DRUGS (2)
  1. EYLEA [Suspect]
     Active Substance: AFLIBERCEPT
     Dosage: UNK, RIGHT EYE, EVERY 3 WEEKS
     Route: 031
     Dates: start: 20180601, end: 20180601
  2. EYLEA [Suspect]
     Active Substance: AFLIBERCEPT
     Indication: NEOVASCULAR AGE-RELATED MACULAR DEGENERATION
     Dosage: UNK, RIGHT EYE, EVERY 3 WEEKS
     Route: 031

REACTIONS (4)
  - Blood pressure increased [Recovered/Resolved]
  - Cataract [Unknown]
  - Vitreous floaters [Recovered/Resolved]
  - Nervousness [Unknown]
